FAERS Safety Report 11048939 (Version 4)
Quarter: 2021Q1

REPORT INFORMATION
  Report Type: Spontaneous
  Country: US (occurrence: US)
  Receive Date: 20150420
  Receipt Date: 20210212
  Transmission Date: 20210419
  Serious: Yes (Death, Disabling, Other)
  Sender: FDA-Public Use
  Company Number: US-009507513-1504USA017085

PATIENT
  Sex: Male
  Weight: 63.04 kg

DRUGS (2)
  1. PROPECIA [Suspect]
     Active Substance: FINASTERIDE
     Indication: ANDROGENETIC ALOPECIA
  2. PROPECIA [Suspect]
     Active Substance: FINASTERIDE
     Indication: ALOPECIA
     Dosage: 1 MG, QD
     Route: 048
     Dates: start: 201008, end: 201110

REACTIONS (12)
  - Abdominal pain [Unknown]
  - Rhinitis allergic [Unknown]
  - Emotional distress [Not Recovered/Not Resolved]
  - Suicide attempt [Unknown]
  - Male orgasmic disorder [Not Recovered/Not Resolved]
  - Prostatitis [Unknown]
  - Vertigo [Not Recovered/Not Resolved]
  - Post 5-alpha-reductase inhibitor syndrome [Not Recovered/Not Resolved]
  - Testicular atrophy [Unknown]
  - Completed suicide [Fatal]
  - Urinary tract disorder [Unknown]
  - Semen viscosity abnormal [Not Recovered/Not Resolved]

NARRATIVE: CASE EVENT DATE: 201110
